FAERS Safety Report 11719960 (Version 3)
Quarter: 2016Q4

REPORT INFORMATION
  Report Type: Spontaneous
  Country: DK (occurrence: DK)
  Receive Date: 20151110
  Receipt Date: 20161116
  Transmission Date: 20170206
  Serious: Yes (Life-Threatening, Hospitalization)
  Sender: FDA-Public Use
  Company Number: DK-ROCHE-1656769

PATIENT
  Age: 45 Year
  Sex: Female
  Weight: 92 kg

DRUGS (3)
  1. MABTHERA [Suspect]
     Active Substance: RITUXIMAB
     Indication: MIXED CONNECTIVE TISSUE DISEASE
     Route: 042
     Dates: start: 20141218, end: 20150910
  2. MYFENAX [Concomitant]
     Active Substance: MYCOPHENOLATE MOFETIL
     Indication: MIXED CONNECTIVE TISSUE DISEASE
     Route: 048
     Dates: start: 20140625, end: 20151030
  3. PLAQUENIL [Concomitant]
     Active Substance: HYDROXYCHLOROQUINE SULFATE
     Indication: MIXED CONNECTIVE TISSUE DISEASE
     Dosage: DOSIS: 400 MG DAGLIG
     Route: 048
     Dates: start: 20140819

REACTIONS (2)
  - Invasive ductal breast carcinoma [Recovered/Resolved]
  - Radical mastectomy [Recovered/Resolved]

NARRATIVE: CASE EVENT DATE: 20150924
